FAERS Safety Report 17697555 (Version 1)
Quarter: 2020Q2

REPORT INFORMATION
  Report Type: Spontaneous
  Country: US (occurrence: US)
  Receive Date: 20200422
  Receipt Date: 20200422
  Transmission Date: 20200714
  Serious: Yes (Hospitalization)
  Sender: FDA-Public Use
  Company Number: None

PATIENT
  Sex: Female

DRUGS (10)
  1. LISINOPRIL. [Concomitant]
     Active Substance: LISINOPRIL
  2. PROPRANOLOL [Concomitant]
     Active Substance: PROPRANOLOL HYDROCHLORIDE
  3. IRON [Concomitant]
     Active Substance: IRON
  4. AMITRIPTYLIN [Concomitant]
     Active Substance: AMITRIPTYLINE
  5. IBUPROFEN. [Concomitant]
     Active Substance: IBUPROFEN
  6. LAMOTRIGINE. [Concomitant]
     Active Substance: LAMOTRIGINE
  7. VITAMIN B12 [Concomitant]
     Active Substance: CYANOCOBALAMIN
  8. VITAMIN D [Concomitant]
     Active Substance: VITAMIN D NOS
  9. TYSABRI [Concomitant]
     Active Substance: NATALIZUMAB
  10. DALFAMPRIDINE. [Suspect]
     Active Substance: DALFAMPRIDINE
     Indication: MULTIPLE SCLEROSIS
     Dosage: ?          OTHER FREQUENCY:Q12H;?
     Route: 048
     Dates: start: 20190530

REACTIONS (1)
  - Fall [None]
